FAERS Safety Report 7553471-6 (Version None)
Quarter: 2011Q2

REPORT INFORMATION
  Report Type: 
  Country: None (occurrence: None)
  Receive Date: 20110617
  Receipt Date: 20110120
  Transmission Date: 20111010
  Serious: Yes (Hospitalization, Other)
  Sender: FDA-Public Use
  Company Number: US-BAYER-201036638NA

PATIENT
  Age: 40 Year
  Sex: Female
  Weight: 81.633 kg

DRUGS (9)
  1. YASMIN [Suspect]
     Indication: MENSTRUAL CYCLE MANAGEMENT
  2. ALLEGRA [Concomitant]
     Indication: ASTHMA
  3. YASMIN [Suspect]
     Indication: CONTRACEPTION
     Route: 048
     Dates: start: 20011201, end: 20090101
  4. DROSPIRENONE AND ETHINYL ESTRADIOL [Suspect]
     Indication: CONTRACEPTION
     Route: 048
     Dates: start: 20090101, end: 20100101
  5. ZYRTEC [Concomitant]
     Indication: ASTHMA
  6. NSAID'S [Concomitant]
     Dosage: UNK UNK, PRN
     Dates: start: 19880101
  7. RANITIDINE [Concomitant]
     Indication: DYSPEPSIA
  8. LAXATIVES [Concomitant]
     Indication: CONSTIPATION
  9. DROSPIRENONE AND ETHINYL ESTRADIOL [Suspect]
     Indication: MENSTRUAL CYCLE MANAGEMENT

REACTIONS (8)
  - CHOLECYSTITIS CHRONIC [None]
  - CHOLECYSTITIS ACUTE [None]
  - RENAL FAILURE [None]
  - MENTAL DISORDER [None]
  - CHOLELITHIASIS [None]
  - VOMITING [None]
  - ABDOMINAL PAIN [None]
  - DEHYDRATION [None]
